FAERS Safety Report 7267352-9 (Version None)
Quarter: 2011Q1

REPORT INFORMATION
  Report Type: 
  Country: None (occurrence: None)
  Receive Date: 20110201
  Receipt Date: 20100614
  Transmission Date: 20110831
  Serious: No
  Sender: FDA-Public Use
  Company Number: A0860420A

PATIENT
  Age: 58 Year
  Sex: Female

DRUGS (7)
  1. OXYCONTIN [Concomitant]
  2. AMLODIPINE [Concomitant]
  3. BENICAR [Concomitant]
  4. VITAMIN TAB [Concomitant]
  5. ARIXTRA [Suspect]
     Dosage: 7.5MG PER DAY
     Route: 058
     Dates: start: 20091201
  6. VYTORIN [Concomitant]
  7. LYRICA [Concomitant]

REACTIONS (3)
  - LOCAL SWELLING [None]
  - PRODUCT QUALITY ISSUE [None]
  - ABDOMINAL PAIN UPPER [None]
